FAERS Safety Report 25531034 (Version 1)
Quarter: 2025Q3

REPORT INFORMATION
  Report Type: Spontaneous
  Country: EU (occurrence: EU)
  Receive Date: 20250708
  Receipt Date: 20250708
  Transmission Date: 20251021
  Serious: Yes (Other)
  Sender: MYLAN
  Company Number: None

PATIENT
  Age: 41 Year
  Sex: Female

DRUGS (2)
  1. TRAMADOL [Suspect]
     Active Substance: TRAMADOL
     Indication: Product used for unknown indication
     Dosage: 100 MILLIGRAM, BID (100 MG MORNING AND EVENING IN LP)
     Dates: start: 2015
  2. TRAMADOL [Suspect]
     Active Substance: TRAMADOL

REACTIONS (1)
  - Drug use disorder [Not Recovered/Not Resolved]
